FAERS Safety Report 13682928 (Version 3)
Quarter: 2017Q3

REPORT INFORMATION
  Report Type: Spontaneous
  Country: US (occurrence: US)
  Receive Date: 20170623
  Receipt Date: 20170815
  Transmission Date: 20171127
  Serious: Yes (Hospitalization, Other)
  Sender: FDA-Public Use
  Company Number: US-OREXIGEN THERAPEUTICS, INC.-2022435

PATIENT
  Age: 48 Year
  Sex: Female
  Weight: 88.89 kg

DRUGS (10)
  1. CONTRAVE [Suspect]
     Active Substance: BUPROPION HYDROCHLORIDE\NALTREXONE HYDROCHLORIDE
     Indication: WEIGHT CONTROL
     Route: 048
     Dates: start: 20170601, end: 20170602
  2. DALMANE [Concomitant]
     Active Substance: FLURAZEPAM HYDROCHLORIDE
     Route: 048
     Dates: start: 2016
  3. CARMOL 40 [Concomitant]
     Active Substance: UREA
     Route: 061
  4. LYRICA [Concomitant]
     Active Substance: PREGABALIN
     Route: 048
     Dates: start: 2013
  5. ACTOS [Concomitant]
     Active Substance: PIOGLITAZONE HYDROCHLORIDE
     Route: 048
     Dates: start: 2013
  6. NATURE-THROID [Concomitant]
     Active Substance: THYROID, PORCINE
     Route: 048
     Dates: start: 2016
  7. VITAMIN B12 [Concomitant]
     Active Substance: CYANOCOBALAMIN
     Route: 065
     Dates: start: 201612
  8. XANAX [Concomitant]
     Active Substance: ALPRAZOLAM
     Route: 048
     Dates: start: 2016
  9. NOVOLIN [Concomitant]
     Active Substance: INSULIN HUMAN
  10. GLUCOPHAGE [Concomitant]
     Active Substance: METFORMIN HYDROCHLORIDE
     Route: 048
     Dates: start: 2011

REACTIONS (5)
  - Dysarthria [Recovered/Resolved]
  - Hypoglycaemia [Recovered/Resolved]
  - Altered state of consciousness [Recovered/Resolved]
  - Loss of consciousness [Recovered/Resolved]
  - Movement disorder [Recovered/Resolved]

NARRATIVE: CASE EVENT DATE: 20170601
